FAERS Safety Report 11183945 (Version 1)
Quarter: 2015Q2

REPORT INFORMATION
  Report Type: Spontaneous
  Country: US (occurrence: None)
  Receive Date: 20150610
  Receipt Date: 20150610
  Transmission Date: 20150821
  Serious: Yes (Other)
  Sender: FDA-Public Use
  Company Number: US-2015EGA000021

PATIENT
  Age: 55 Year
  Sex: Female

DRUGS (14)
  1. PROZAC [Concomitant]
     Active Substance: FLUOXETINE HYDROCHLORIDE
  2. SINGULAR (MONTELUKAST SODIUM) [Concomitant]
  3. MS CONTIN (MORPHINE SULFATE) [Concomitant]
  4. CYTOMEL (LIOTHYRONINE SODIUM) [Concomitant]
  5. OXYCONTIN [Suspect]
     Active Substance: OXYCODONE HYDROCHLORIDE
     Indication: PAIN
     Dates: start: 200601
  6. SOMA [Concomitant]
     Active Substance: CARISOPRODOL
  7. KLONOPIN [Concomitant]
     Active Substance: CLONAZEPAM
  8. PRILOSEC (OMEPRAZOLE) [Concomitant]
     Active Substance: OMEPRAZOLE MAGNESIUM
  9. SECONAL (SECOBARBITAL) [Concomitant]
  10. LOVENOX [Concomitant]
     Active Substance: ENOXAPARIN SODIUM
  11. RESTORIL [Concomitant]
     Active Substance: TEMAZEPAM
  12. DEXTROAMPHETAMINE (DEXAMFETAMINE) [Concomitant]
  13. OXYCODONE HYDROCHLORIDE. [Suspect]
     Active Substance: OXYCODONE HYDROCHLORIDE
     Indication: PAIN
     Dates: start: 200601
  14. FLONASE [Concomitant]
     Active Substance: FLUTICASONE PROPIONATE

REACTIONS (6)
  - Cough [None]
  - Chest discomfort [None]
  - Suicidal ideation [None]
  - Fatigue [None]
  - Somnolence [None]
  - Fall [None]

NARRATIVE: CASE EVENT DATE: 200605
